FAERS Safety Report 11752150 (Version 1)
Quarter: 2015Q4

REPORT INFORMATION
  Report Type: Spontaneous
  Country: US (occurrence: US)
  Receive Date: 20151118
  Receipt Date: 20151118
  Transmission Date: 20160304
  Serious: No
  Sender: FDA-Public Use
  Company Number: US-ACTELION PHARMACEUTICALS US, INC.-A-NJ2014-96403

PATIENT
  Age: 53 Year
  Sex: Female

DRUGS (2)
  1. VENTAVIS [Suspect]
     Active Substance: ILOPROST
     Indication: PULMONARY HYPERTENSION
     Dosage: 2.5 MCG, 5-6X/DAY
     Route: 055
     Dates: start: 20140306
  2. VENTAVIS [Suspect]
     Active Substance: ILOPROST
     Dosage: 5 MCG, 6-9 TIMES DAILY
     Route: 055

REACTIONS (9)
  - Pain [Unknown]
  - Systemic lupus erythematosus [Recovering/Resolving]
  - Headache [Unknown]
  - Flushing [Not Recovered/Not Resolved]
  - Productive cough [Unknown]
  - Dry throat [Not Recovered/Not Resolved]
  - Fatigue [Unknown]
  - Dry mouth [Unknown]
  - Rash [Recovering/Resolving]
